FAERS Safety Report 4792872-6 (Version None)
Quarter: 2005Q4

REPORT INFORMATION
  Report Type: 
  Country: None (occurrence: None)
  Receive Date: 20051010
  Receipt Date: 20050915
  Transmission Date: 20060501
  Serious: Yes (Other)
  Sender: FDA-Public Use
  Company Number: PHBS2005BE13683

PATIENT
  Age: 65 Year
  Sex: Male

DRUGS (7)
  1. ZOMETA [Suspect]
     Indication: METASTASES TO BONE
     Dosage: UNK, UNK
     Route: 065
     Dates: start: 20030920, end: 20050802
  2. RADIATION THERAPY [Concomitant]
     Indication: METASTASES TO BONE
     Dates: start: 20031001, end: 20031107
  3. MEGACE [Concomitant]
     Dates: end: 20040101
  4. CISPLATIN [Concomitant]
     Dates: start: 20040114, end: 20050803
  5. DEXAMETHASONE [Concomitant]
     Dates: start: 20040114, end: 20050803
  6. ELVORINE [Concomitant]
     Dates: start: 20040114, end: 20050803
  7. FLUOROURACIL [Concomitant]
     Dates: start: 20040114, end: 20050803

REACTIONS (3)
  - MOUTH ULCERATION [None]
  - OSTEONECROSIS [None]
  - WOUND DEBRIDEMENT [None]
